FAERS Safety Report 6479465-X (Version None)
Quarter: 2009Q4

REPORT INFORMATION
  Report Type: 
  Country: None (occurrence: None)
  Receive Date: 20091208
  Receipt Date: 20091201
  Transmission Date: 20100525
  Serious: Yes (Hospitalization)
  Sender: FDA-Public Use
  Company Number: US-BIOGENIDEC-2007BI022617

PATIENT
  Age: 60 Year
  Sex: Female
  Weight: 61 kg

DRUGS (6)
  1. AVONEX [Suspect]
     Indication: MULTIPLE SCLEROSIS
     Route: 030
     Dates: start: 20050601
  2. AVONEX [Suspect]
     Route: 030
     Dates: start: 20060101, end: 20080101
  3. FOSAMAX [Concomitant]
     Indication: DRUG USE FOR UNKNOWN INDICATION
  4. LOVASTATIN [Concomitant]
     Indication: DRUG USE FOR UNKNOWN INDICATION
  5. ALPRAZOLAM [Concomitant]
     Indication: DRUG USE FOR UNKNOWN INDICATION
  6. IBUPROFEN [Concomitant]
     Indication: DRUG USE FOR UNKNOWN INDICATION

REACTIONS (5)
  - ARTHRALGIA [None]
  - MULTIPLE SCLEROSIS RELAPSE [None]
  - OSTEOARTHRITIS [None]
  - PROCEDURAL PAIN [None]
  - PYREXIA [None]
